FAERS Safety Report 16658038 (Version 1)
Quarter: 2019Q3

REPORT INFORMATION
  Report Type: Spontaneous
  Country: US (occurrence: US)
  Receive Date: 20190801
  Receipt Date: 20190801
  Transmission Date: 20191004
  Serious: Yes (Other)
  Sender: FDA-Public Use
  Company Number: US-JNJFOC-20190739055

PATIENT
  Age: 91 Year
  Sex: Female
  Weight: 87.17 kg

DRUGS (9)
  1. ASPRIN [Suspect]
     Active Substance: ASPIRIN
     Route: 065
  2. XARELTO [Suspect]
     Active Substance: RIVAROXABAN
     Indication: ATRIAL FIBRILLATION
     Route: 048
     Dates: start: 20170625
  3. ASPRIN [Suspect]
     Active Substance: ASPIRIN
     Indication: PRODUCT USED FOR UNKNOWN INDICATION
     Route: 065
  4. ALEVE [Suspect]
     Active Substance: NAPROXEN SODIUM
     Indication: ARTHRITIS
     Route: 065
  5. HUMALOG [Concomitant]
     Active Substance: INSULIN LISPRO
  6. LASIX [Concomitant]
     Active Substance: FUROSEMIDE
     Indication: FLUID RETENTION
  7. ATENOLOL. [Concomitant]
     Active Substance: ATENOLOL
  8. XARELTO [Suspect]
     Active Substance: RIVAROXABAN
     Indication: THROMBOSIS
     Route: 048
  9. PREVACID [Concomitant]
     Active Substance: LANSOPRAZOLE

REACTIONS (6)
  - Haematochezia [Recovering/Resolving]
  - Skin haemorrhage [Recovered/Resolved]
  - Blood pressure increased [Unknown]
  - Contusion [Not Recovered/Not Resolved]
  - Epistaxis [Not Recovered/Not Resolved]
  - Rectal discharge [Recovering/Resolving]

NARRATIVE: CASE EVENT DATE: 2019
